FAERS Safety Report 5753838-2 (Version None)
Quarter: 2008Q2

REPORT INFORMATION
  Report Type: 
  Country: None (occurrence: None)
  Receive Date: 20080527
  Receipt Date: 20080527
  Transmission Date: 20081010
  Serious: Yes (Other)
  Sender: FDA-Public Use
  Company Number: None

PATIENT
  Age: 87 Year
  Sex: Male
  Weight: 63.5036 kg

DRUGS (1)
  1. FOSAMAX PLUS D [Suspect]
     Indication: OSTEOPOROSIS
     Dosage: 70 MG  ONCE WEEKLY
     Dates: start: 20080128, end: 20080519

REACTIONS (2)
  - ACTIVITIES OF DAILY LIVING IMPAIRED [None]
  - MUSCULOSKELETAL PAIN [None]
